FAERS Safety Report 8997972 (Version 3)
Quarter: 2013Q1

REPORT INFORMATION
  Report Type: Spontaneous
  Country: SE (occurrence: SE)
  Receive Date: 20130104
  Receipt Date: 20130221
  Transmission Date: 20140127
  Serious: No
  Sender: FDA-Public Use
  Company Number: SE-ELI_LILLY_AND_COMPANY-SE201301000761

PATIENT
  Age: 75 Year
  Sex: Male

DRUGS (3)
  1. BYDUREON [Suspect]
     Indication: TYPE 2 DIABETES MELLITUS
     Dosage: 2 MG, WEEKLY (1/W)
     Route: 058
     Dates: start: 20120906, end: 20121114
  2. METFORMIN [Concomitant]
  3. LEVAXIN [Concomitant]

REACTIONS (1)
  - Injection site extravasation [Not Recovered/Not Resolved]
